FAERS Safety Report 19097664 (Version 2)
Quarter: 2021Q3

REPORT INFORMATION
  Report Type: Spontaneous
  Country: US (occurrence: US)
  Receive Date: 20210406
  Receipt Date: 20210930
  Transmission Date: 20211014
  Serious: Yes (Other)
  Sender: FDA-Public Use
  Company Number: US-PFIZER INC-2016298655

PATIENT
  Age: 70 Year
  Sex: Female
  Weight: 102 kg

DRUGS (4)
  1. METOPROLOL. [Concomitant]
     Active Substance: METOPROLOL
     Indication: HYPERTENSION
     Dosage: 50 MG, 1X/DAY (AT NIGHT)
  2. LYRICA [Suspect]
     Active Substance: PREGABALIN
     Indication: FIBROMYALGIA
     Dosage: 50 MG, 4X/DAY
     Route: 048
  3. LYRICA [Suspect]
     Active Substance: PREGABALIN
     Dosage: 50 MG, FOUR TIMES A DAY
     Route: 048
     Dates: start: 20191029
  4. LYRICA [Suspect]
     Active Substance: PREGABALIN
     Dosage: 50 MG, 4 TIMES DAILY
     Route: 048

REACTIONS (3)
  - Intentional product misuse [Unknown]
  - Road traffic accident [Unknown]
  - Cervical vertebral fracture [Unknown]
